FAERS Safety Report 8926009 (Version 2)
Quarter: 2012Q4

REPORT INFORMATION
  Report Type: 
  Country: IT (occurrence: IT)
  Receive Date: 20121126
  Receipt Date: 20121228
  Transmission Date: 20130627
  Serious: No
  Sender: FDA-Public Use
  Company Number: IT-BAYER-2012-122105

PATIENT
  Age: 35 Year
  Sex: Male

DRUGS (2)
  1. ASPIRINA [Suspect]
     Indication: FEVER
     Dosage: 500 mg, ONCE
     Route: 048
     Dates: start: 20120615, end: 20120615
  2. TOBRADEX [Concomitant]
     Indication: CONJUNCTIVITIS

REACTIONS (1)
  - Hypersensitivity [Recovered/Resolved]
